FAERS Safety Report 11395299 (Version 1)
Quarter: 2015Q3

REPORT INFORMATION
  Report Type: Spontaneous
  Country: US (occurrence: None)
  Receive Date: 20150817
  Receipt Date: 20150817
  Transmission Date: 20151125
  Serious: Yes (Life-Threatening, Hospitalization, Disabling)
  Sender: FDA-Public Use
  Company Number: None

PATIENT
  Age: 45 Year
  Sex: Female
  Weight: 104.33 kg

DRUGS (2)
  1. ANTABUSE [Suspect]
     Active Substance: DISULFIRAM
     Indication: ALCOHOL USE
     Dosage: 2 MONTHS
  2. PROTEIN DRINKS [Concomitant]

REACTIONS (4)
  - Renal failure [None]
  - Myocardial infarction [None]
  - Apparent death [None]
  - Dehydration [None]
